FAERS Safety Report 5142836-8 (Version None)
Quarter: 2006Q4

REPORT INFORMATION
  Report Type: 
  Country: None (occurrence: None)
  Receive Date: 20061030
  Receipt Date: 20061017
  Transmission Date: 20070319
  Serious: Yes (Death)
  Sender: FDA-Public Use
  Company Number: US018583

PATIENT

DRUGS (2)
  1. PROVIGIL [Suspect]
  2. SSRI [Concomitant]

REACTIONS (1)
  - COMPLETED SUICIDE [None]
